FAERS Safety Report 11523699 (Version 1)
Quarter: 2015Q3

REPORT INFORMATION
  Report Type: Spontaneous
  Country: US (occurrence: US)
  Receive Date: 20150903
  Receipt Date: 20150903
  Transmission Date: 20151125
  Serious: No
  Sender: FDA-Public Use
  Company Number: US-ELI_LILLY_AND_COMPANY-US201302007597

PATIENT
  Sex: Female

DRUGS (4)
  1. CYMBALTA [Suspect]
     Active Substance: DULOXETINE HYDROCHLORIDE
     Dosage: 20 MG, QD
  2. CYMBALTA [Suspect]
     Active Substance: DULOXETINE HYDROCHLORIDE
     Dosage: 60 MG, QD
  3. CYMBALTA [Suspect]
     Active Substance: DULOXETINE HYDROCHLORIDE
     Indication: DEPRESSION
     Dosage: 30 MG, QD
     Dates: start: 201201
  4. CYMBALTA [Suspect]
     Active Substance: DULOXETINE HYDROCHLORIDE
     Dosage: 30 MG, QD

REACTIONS (19)
  - Nasal ulcer [Unknown]
  - Mucosal ulceration [Unknown]
  - Social avoidant behaviour [Unknown]
  - Drug ineffective [Unknown]
  - Feeling abnormal [Unknown]
  - Stomatitis [Unknown]
  - Fall [Unknown]
  - Scab [Unknown]
  - Pruritus generalised [Unknown]
  - Hyperhidrosis [Unknown]
  - Urticaria [Unknown]
  - Loss of libido [Unknown]
  - Personality change [Unknown]
  - Fatigue [Unknown]
  - Pain [Unknown]
  - Ulcer haemorrhage [Unknown]
  - Mobility decreased [Unknown]
  - Drug withdrawal syndrome [Unknown]
  - Tremor [Unknown]
